FAERS Safety Report 10570113 (Version 1)
Quarter: 2014Q4

REPORT INFORMATION
  Report Type: Spontaneous
  Country: US (occurrence: None)
  Receive Date: 20141106
  Receipt Date: 20141106
  Transmission Date: 20150529
  Serious: Yes (Hospitalization)
  Sender: FDA-Public Use
  Company Number: None

PATIENT
  Age: 59 Year
  Sex: Female
  Weight: 86.18 kg

DRUGS (12)
  1. FENTANYL. [Concomitant]
     Active Substance: FENTANYL
  2. NORVASC [Concomitant]
     Active Substance: AMLODIPINE BESYLATE
  3. ALTACE [Concomitant]
     Active Substance: RAMIPRIL
  4. REGLAN [Concomitant]
     Active Substance: METOCLOPRAMIDE HYDROCHLORIDE
  5. SLOW MAG [Concomitant]
     Active Substance: MAGNESIUM CHLORIDE
  6. ZOFRAN [Concomitant]
     Active Substance: ONDANSETRON HYDROCHLORIDE
  7. XARELTO [Suspect]
     Active Substance: RIVAROXABAN
     Indication: DEEP VEIN THROMBOSIS
     Dosage: 1 PILL, EVENING OR BEDTIME, BY MOUTH
     Dates: start: 20140522
  8. XARELTO [Suspect]
     Active Substance: RIVAROXABAN
     Indication: PULMONARY EMBOLISM
     Dosage: 1 PILL, EVENING OR BEDTIME, BY MOUTH
     Dates: start: 20140522
  9. TOPROL/XL [Concomitant]
  10. LORTAB [Concomitant]
     Active Substance: ACETAMINOPHEN\HYDROCODONE BITARTRATE
  11. OMEGA XL [Concomitant]
     Active Substance: DIETARY SUPPLEMENT
  12. MORPHINE [Concomitant]
     Active Substance: MORPHINE

REACTIONS (5)
  - Anaemia [None]
  - Haematuria [None]
  - Vertigo [None]
  - Urinary tract infection [None]
  - Vaginal haemorrhage [None]
